FAERS Safety Report 17050003 (Version 2)
Quarter: 2019Q4

REPORT INFORMATION
  Report Type: Spontaneous
  Country: US (occurrence: US)
  Receive Date: 20191119
  Receipt Date: 20191212
  Transmission Date: 20200122
  Serious: No
  Sender: FDA-Public Use
  Company Number: US-PFIZER INC-2019499950

PATIENT
  Age: 67 Year
  Sex: Female
  Weight: 80 kg

DRUGS (2)
  1. IBRANCE [Suspect]
     Active Substance: PALBOCICLIB
     Dosage: 125 MG, CYCLIC (DAYS 1-21 Q28 DAYS)
     Route: 048
     Dates: start: 20190926, end: 201912
  2. IBRANCE [Suspect]
     Active Substance: PALBOCICLIB
     Indication: BREAST CANCER METASTATIC
     Dosage: 100 MG CYCLIC (DAYS 1-21 EVERY 28 DAYS)
     Route: 048
     Dates: start: 20190926

REACTIONS (2)
  - Alopecia [Unknown]
  - Skin disorder [Unknown]
